FAERS Safety Report 4334059-7 (Version None)
Quarter: 2004Q1

REPORT INFORMATION
  Report Type: 
  Country: None (occurrence: None)
  Receive Date: 20040329
  Receipt Date: 20031217
  Transmission Date: 20041129
  Serious: No
  Sender: FDA-Public Use
  Company Number: 03P-163-0244969-00

PATIENT
  Age: 60 Year
  Sex: Female

DRUGS (12)
  1. HUMIRA [Suspect]
     Indication: RHEUMATOID ARTHRITIS
     Dosage: 40 MG, 1 IN 2 WK, SUBCUTANEOUS
     Route: 058
     Dates: start: 20030501
  2. METHOTREXATE [Concomitant]
  3. PREDNISONE [Concomitant]
  4. VENLAFAXINE HCL [Concomitant]
  5. MIRTAZAPINE [Concomitant]
  6. NISOLDIPINE [Concomitant]
  7. HYDROCHLOROTHIAZIDE [Concomitant]
  8. FOLIC ACID [Concomitant]
  9. LEVOTHYROXINE SODIUM [Concomitant]
  10. FENOFIBRATE [Concomitant]
  11. RANITIDINE [Concomitant]
  12. ALPRAZOLAM [Concomitant]

REACTIONS (3)
  - COUGH [None]
  - HEADACHE [None]
  - RHINORRHOEA [None]
